FAERS Safety Report 12802092 (Version 1)
Quarter: 2016Q4

REPORT INFORMATION
  Report Type: Spontaneous
  Country: US (occurrence: US)
  Receive Date: 20161003
  Receipt Date: 20161003
  Transmission Date: 20170207
  Serious: No
  Sender: FDA-Public Use
  Company Number: US-JAZZ-2016-US-012151

PATIENT
  Sex: Female

DRUGS (16)
  1. XYREM [Suspect]
     Active Substance: SODIUM OXYBATE
     Dosage: 4.5 G, BID
     Route: 048
     Dates: start: 201604
  2. CLONAZEPAM. [Concomitant]
     Active Substance: CLONAZEPAM
  3. FETZIMA [Concomitant]
     Active Substance: LEVOMILNACIPRAN HYDROCHLORIDE
  4. XANAX [Concomitant]
     Active Substance: ALPRAZOLAM
  5. XYREM [Suspect]
     Active Substance: SODIUM OXYBATE
     Indication: NARCOLEPSY
     Dosage: 2.25 G, BID
     Route: 048
     Dates: start: 201603, end: 201604
  6. XYREM [Suspect]
     Active Substance: SODIUM OXYBATE
     Dosage: DOSE ADJUSTMENTS
     Route: 048
     Dates: start: 201604, end: 201604
  7. LORAZEPAM. [Concomitant]
     Active Substance: LORAZEPAM
  8. METHYLPHENIDATE. [Concomitant]
     Active Substance: METHYLPHENIDATE
  9. BENZTROPINE MESILATE [Concomitant]
     Active Substance: BENZTROPINE MESYLATE
  10. LAMICTAL [Concomitant]
     Active Substance: LAMOTRIGINE
  11. DEPAKOTE [Concomitant]
     Active Substance: DIVALPROEX SODIUM
  12. LATUDA [Concomitant]
     Active Substance: LURASIDONE HYDROCHLORIDE
  13. NUVIGIL [Concomitant]
     Active Substance: ARMODAFINIL
  14. ATENOLOL. [Concomitant]
     Active Substance: ATENOLOL
  15. CARBAMAZEPINE. [Concomitant]
     Active Substance: CARBAMAZEPINE
  16. SYNTHROID [Concomitant]
     Active Substance: LEVOTHYROXINE SODIUM

REACTIONS (1)
  - Heart rate increased [Not Recovered/Not Resolved]

NARRATIVE: CASE EVENT DATE: 2016
